FAERS Safety Report 17821146 (Version 1)
Quarter: 2020Q2

REPORT INFORMATION
  Report Type: Spontaneous
  Country: CN (occurrence: CN)
  Receive Date: 20200525
  Receipt Date: 20200525
  Transmission Date: 20200714
  Serious: Yes (Other)
  Sender: FDA-Public Use
  Company Number: CN-SA-2020SA131370

PATIENT

DRUGS (1)
  1. LYXUMIA [Suspect]
     Active Substance: LIXISENATIDE
     Indication: DIABETES MELLITUS
     Route: 065

REACTIONS (6)
  - Transaminases increased [Unknown]
  - Abdominal pain upper [Unknown]
  - Disease recurrence [Unknown]
  - Pyrexia [Unknown]
  - Cholelithiasis [Unknown]
  - Liver injury [Unknown]
